FAERS Safety Report 7442764-9 (Version None)
Quarter: 2011Q2

REPORT INFORMATION
  Report Type: 
  Country: None (occurrence: None)
  Receive Date: 20110428
  Receipt Date: 20110421
  Transmission Date: 20111010
  Serious: Yes (Other)
  Sender: FDA-Public Use
  Company Number: AU-ASTRAZENECA-2011SE23466

PATIENT

DRUGS (1)
  1. SEROQUEL [Suspect]

REACTIONS (2)
  - DRUG EXPOSURE VIA BREAST MILK [None]
  - VOMITING [None]
